FAERS Safety Report 9783199 (Version 2)
Quarter: 2014Q1

REPORT INFORMATION
  Report Type: Spontaneous
  Country: IT (occurrence: None)
  Receive Date: 20131223
  Receipt Date: 20140212
  Transmission Date: 20141002
  Serious: Yes (Hospitalization)
  Sender: FDA-Public Use
  Company Number: 2013AP010582

PATIENT
  Age: 79 Year
  Sex: Male

DRUGS (6)
  1. LEVOFLOXACIN [Suspect]
     Indication: INFECTION
     Route: 048
     Dates: start: 20130810, end: 20130812
  2. GLIBOMET [Suspect]
     Indication: TYPE 2 DIABETES MELLITUS
     Dosage: TAB_FILM;PO;QD
     Route: 048
     Dates: start: 20120101, end: 20130812
  3. TRIATEC HCT (SALUTEC) [Concomitant]
  4. CARDURA (DOXAZOSIN MESILATE) [Concomitant]
  5. OSIPINE (BARNIDIPINE HYDROCHLORIDE) [Concomitant]
  6. SIMVASTATIN (SIMVASTATIN) [Concomitant]

REACTIONS (3)
  - Aphasia [None]
  - Hypoglycaemia [None]
  - Drug interaction [None]
